FAERS Safety Report 6660715-1 (Version None)
Quarter: 2010Q1

REPORT INFORMATION
  Report Type: 
  Country: None (occurrence: None)
  Receive Date: 20100331
  Receipt Date: 20100323
  Transmission Date: 20100710
  Serious: Yes (Death, Other)
  Sender: FDA-Public Use
  Company Number: US-NAPPMUNDI-USA-2010-0042366

PATIENT
  Sex: Female

DRUGS (4)
  1. OXYCONTIN [Suspect]
     Indication: DRUG USE FOR UNKNOWN INDICATION
  2. COCAINE [Suspect]
     Indication: DRUG ABUSE
  3. PERCOCET [Suspect]
     Indication: DRUG USE FOR UNKNOWN INDICATION
  4. ALCOHOL [Suspect]
     Indication: DRUG ABUSE

REACTIONS (4)
  - ACCIDENTAL OVERDOSE [None]
  - PAIN [None]
  - POLYSUBSTANCE DEPENDENCE [None]
  - SUBSTANCE ABUSE [None]
